FAERS Safety Report 18854647 (Version 1)
Quarter: 2021Q1

REPORT INFORMATION
  Report Type: Spontaneous
  Country: JP (occurrence: JP)
  Receive Date: 20210205
  Receipt Date: 20210205
  Transmission Date: 20210420
  Serious: Yes (Hospitalization)
  Sender: FDA-Public Use
  Company Number: JP-CELGENEUS-JPN-20210107369

PATIENT
  Age: 59 Year
  Sex: Male
  Weight: 63.6 kg

DRUGS (10)
  1. GEMCITABINE. [Concomitant]
     Active Substance: GEMCITABINE
     Dosage: 1500 MILLIGRAM
     Route: 041
     Dates: start: 20200814
  2. ABRAXANE [Suspect]
     Active Substance: PACLITAXEL
     Indication: PANCREATIC CARCINOMA METASTATIC
     Dosage: 230 MILLIGRAM
     Route: 041
     Dates: start: 20200807, end: 20200807
  3. ALOXI [Suspect]
     Active Substance: PALONOSETRON HYDROCHLORIDE
     Dosage: .75 MILLIGRAM
     Route: 041
     Dates: start: 20200828
  4. GEMCITABINE. [Concomitant]
     Active Substance: GEMCITABINE
     Indication: PANCREATIC CARCINOMA METASTATIC
     Dosage: 1900 MILLIGRAM
     Route: 041
     Dates: start: 20200807, end: 20200807
  5. ABRAXANE [Suspect]
     Active Substance: PACLITAXEL
     Dosage: 190 MILLIGRAM
     Route: 041
     Dates: start: 20200814, end: 20200814
  6. ALOXI [Suspect]
     Active Substance: PALONOSETRON HYDROCHLORIDE
     Dosage: .75 MILLIGRAM
     Route: 041
     Dates: start: 20200814, end: 20200814
  7. ORGADRONE [Concomitant]
     Active Substance: DEXAMETHASONE SODIUM PHOSPHATE
     Indication: PRODUCT USED FOR UNKNOWN INDICATION
     Dosage: 7.6 MILLIGRAM
     Route: 065
     Dates: start: 20200807, end: 20200807
  8. ALOXI [Suspect]
     Active Substance: PALONOSETRON HYDROCHLORIDE
     Indication: PANCREATIC CARCINOMA METASTATIC
     Dosage: .75 MILLIGRAM
     Route: 041
     Dates: start: 20200807, end: 20200807
  9. ORGADRONE [Concomitant]
     Active Substance: DEXAMETHASONE SODIUM PHOSPHATE
     Dosage: 7.6 MILLIGRAM
     Route: 065
     Dates: start: 20200828
  10. ORGADRONE [Concomitant]
     Active Substance: DEXAMETHASONE SODIUM PHOSPHATE
     Dosage: 7.6 MILLIGRAM
     Route: 065
     Dates: start: 20200814, end: 20200814

REACTIONS (2)
  - Acute respiratory distress syndrome [Recovered/Resolved]
  - Interstitial lung disease [Recovered/Resolved]

NARRATIVE: CASE EVENT DATE: 20200910
